FAERS Safety Report 9832418 (Version 2)
Quarter: 2014Q1

REPORT INFORMATION
  Report Type: Spontaneous
  Country: CA (occurrence: CA)
  Receive Date: 20140121
  Receipt Date: 20140121
  Transmission Date: 20141002
  Serious: Yes (Other)
  Sender: FDA-Public Use
  Company Number: CA-009507513-1201USA01880

PATIENT
  Age: 84 Year
  Sex: Female
  Weight: 58 kg

DRUGS (8)
  1. FOSAMAX [Suspect]
     Indication: OSTEOPOROSIS
     Dosage: UNK, QW
     Route: 048
     Dates: start: 20031209
  2. ACTONEL [Suspect]
     Route: 048
  3. PROLIA [Suspect]
     Dosage: UNK
     Route: 058
     Dates: end: 20110412
  4. DIDROCAL [Concomitant]
     Indication: OSTEOPOROSIS
     Dosage: 400 MG, QD, KIT
     Route: 065
  5. EVISTA [Concomitant]
     Dosage: 670 MG, QD
  6. HORMONES (UNSPECIFIED) [Concomitant]
     Dosage: UNK UNK, QD
     Route: 065
  7. FORTEO [Concomitant]
     Dosage: 20 MG, QD, SOLUTION
     Route: 065
  8. MIACALCIN [Concomitant]
     Dosage: 200 U, QD, SPRAY (NOT INHALATION)
     Route: 065

REACTIONS (3)
  - Renal failure [Unknown]
  - Wrist fracture [Unknown]
  - Osteoporosis [Unknown]
